FAERS Safety Report 11417674 (Version 2)
Quarter: 2015Q4

REPORT INFORMATION
  Report Type: Spontaneous
  Country: US (occurrence: US)
  Receive Date: 20150825
  Receipt Date: 20151221
  Transmission Date: 20160304
  Serious: No
  Sender: FDA-Public Use
  Company Number: US-PFIZER INC-2015281966

PATIENT
  Age: 6 Decade
  Sex: Female
  Weight: 86 kg

DRUGS (7)
  1. VITAMIN D [Concomitant]
     Active Substance: CHOLECALCIFEROL
     Dosage: 1000 UNITS, DAILY
     Route: 048
  2. CLINDAMYCIN PHOSPHATE. [Suspect]
     Active Substance: CLINDAMYCIN PHOSPHATE
     Indication: BACTERIAL INFECTION
  3. MAGNESIUM [Concomitant]
     Active Substance: MAGNESIUM
     Dosage: 400 MG, 2X/DAY
  4. BIOTIN [Concomitant]
     Active Substance: BIOTIN
     Dosage: 2500 MG, DAILY
     Route: 048
  5. SOLODYN [Concomitant]
     Active Substance: MINOCYCLINE HYDROCHLORIDE
     Indication: HYPERSENSITIVITY
     Dosage: 1 DF, 65 MG
     Route: 048
  6. CLINDAMYCIN PHOSPHATE. [Suspect]
     Active Substance: CLINDAMYCIN PHOSPHATE
     Indication: VAGINAL ODOUR
     Dosage: APPLY AT BEDTIME, SEVEN DAYS, 2% VAGINAL CREAM
     Route: 067
     Dates: start: 20150819
  7. COENZYME Q10 [Concomitant]
     Active Substance: UBIDECARENONE
     Dosage: 100 MG, DAILY
     Route: 048

REACTIONS (6)
  - Palpitations [Recovered/Resolved]
  - Vulvovaginal burning sensation [Recovering/Resolving]
  - Abdominal pain upper [Recovered/Resolved]
  - Irritability [Unknown]
  - Product packaging issue [Unknown]
  - Pruritus [Unknown]

NARRATIVE: CASE EVENT DATE: 20150819
